FAERS Safety Report 6193001-7 (Version None)
Quarter: 2009Q2

REPORT INFORMATION
  Report Type: 
  Country: None (occurrence: None)
  Receive Date: 20090513
  Receipt Date: 20090513
  Transmission Date: 20091009
  Serious: No
  Sender: FDA-Public Use
  Company Number: None

PATIENT
  Age: 49 Year
  Sex: Female
  Weight: 66.2252 kg

DRUGS (2)
  1. VENLAFAXINE HCL EXTENDED-RELEASE [Suspect]
     Indication: ANXIETY
     Dosage: 150 MG 1/DAY PO
     Route: 048
     Dates: start: 20090411, end: 20090511
  2. VENLAFAXINE HCL EXTENDED-RELEASE [Suspect]
     Indication: DEPRESSION
     Dosage: 150 MG 1/DAY PO
     Route: 048
     Dates: start: 20090411, end: 20090511

REACTIONS (1)
  - DRUG EFFECT DECREASED [None]
